FAERS Safety Report 8338305-4 (Version None)
Quarter: 2012Q2

REPORT INFORMATION
  Report Type: 
  Country: None (occurrence: None)
  Receive Date: 20120504
  Receipt Date: 20120424
  Transmission Date: 20120825
  Serious: Yes (Hospitalization)
  Sender: FDA-Public Use
  Company Number: US-ACTELION-A-US2012-59232

PATIENT

DRUGS (4)
  1. TRACLEER [Suspect]
     Indication: PULMONARY ARTERIAL HYPERTENSION
     Dosage: UNK
     Route: 048
     Dates: start: 20110615
  2. REVATIO [Concomitant]
  3. COUMADIN [Concomitant]
  4. TYVASO [Concomitant]

REACTIONS (2)
  - GASTROENTERITIS [None]
  - VOMITING [None]
